FAERS Safety Report 7404260-4 (Version None)
Quarter: 2011Q2

REPORT INFORMATION
  Report Type: 
  Country: None (occurrence: None)
  Receive Date: 20110408
  Receipt Date: 20110405
  Transmission Date: 20111010
  Serious: Yes (Death)
  Sender: FDA-Public Use
  Company Number: PHHY2011JP27327

PATIENT
  Sex: Female

DRUGS (6)
  1. SUNITINIB MALATE [Concomitant]
     Dosage: 37.5 MG, UNK
     Route: 048
     Dates: start: 20100317, end: 20100518
  2. SORAFENIB TOSILATE [Concomitant]
     Dosage: 800 MG, UNK
     Route: 048
     Dates: start: 20090819, end: 20100316
  3. AFINITOR [Suspect]
     Indication: METASTATIC RENAL CELL CARCINOMA
     Dosage: 10 MG, DAILY
     Route: 048
     Dates: start: 20100604, end: 20100617
  4. OXINORM [Concomitant]
     Dosage: 2.5 MG, UNK
     Route: 048
     Dates: start: 20100607
  5. CALONAL [Concomitant]
     Dosage: UNK
     Route: 048
     Dates: start: 20100605
  6. AFINITOR [Suspect]
     Dosage: 5 MG, DAILY
     Route: 048
     Dates: start: 20100629

REACTIONS (1)
  - NEOPLASM MALIGNANT [None]
